FAERS Safety Report 23263356 (Version 1)
Quarter: 2023Q4

REPORT INFORMATION
  Report Type: Spontaneous
  Country: JP (occurrence: JP)
  Receive Date: 20231205
  Receipt Date: 20231205
  Transmission Date: 20240110
  Serious: Yes (Hospitalization)
  Sender: FDA-Public Use
  Company Number: JP-NShinyaku-EVA202303045ZZLILLY

PATIENT
  Sex: Male

DRUGS (4)
  1. TADALAFIL [Suspect]
     Active Substance: TADALAFIL
     Indication: Product used for unknown indication
     Dosage: 2.5 MG, DAILY
     Route: 048
     Dates: start: 2022, end: 2023
  2. TADALAFIL [Suspect]
     Active Substance: TADALAFIL
     Dosage: 2.5 MG, DAILY
     Route: 048
     Dates: start: 20230412, end: 2023
  3. TADALAFIL [Suspect]
     Active Substance: TADALAFIL
     Dosage: 2.5 MG, DAILY
     Route: 048
     Dates: start: 2023, end: 2023
  4. TADALAFIL [Suspect]
     Active Substance: TADALAFIL
     Dosage: 2.5 MG, DAILY
     Route: 048
     Dates: start: 202311, end: 202311

REACTIONS (12)
  - Hernia [Recovering/Resolving]
  - Bacterial test positive [Unknown]
  - Gait disturbance [Unknown]
  - Decreased appetite [Unknown]
  - Musculoskeletal discomfort [Unknown]
  - Defaecation disorder [Unknown]
  - Muscle tightness [Unknown]
  - Faeces soft [Unknown]
  - Sudden hearing loss [Unknown]
  - Back pain [Unknown]
  - Pain in extremity [Unknown]
  - Myalgia [Unknown]

NARRATIVE: CASE EVENT DATE: 20230101
